FAERS Safety Report 17566445 (Version 1)
Quarter: 2020Q1

REPORT INFORMATION
  Report Type: Spontaneous
  Country: US (occurrence: US)
  Receive Date: 20200316
  Receipt Date: 20200316
  Transmission Date: 20200409
  Serious: No
  Sender: FDA-Public Use
  Company Number: None

PATIENT
  Age: 49 Year
  Sex: Female
  Weight: 75 kg

DRUGS (1)
  1. ADALIMUMAB (ADALIMUMAB 40MG/0.4ML INJ, PEN, KIT) [Suspect]
     Active Substance: ADALIMUMAB
     Indication: CROHN^S DISEASE
     Dosage: ?          OTHER STRENGTH:40MG/0.4ML;?
     Route: 030
     Dates: start: 20181126, end: 20200219

REACTIONS (3)
  - Injection site pain [None]
  - Injection site pruritus [None]
  - Injection site nodule [None]

NARRATIVE: CASE EVENT DATE: 20200218
